FAERS Safety Report 4821163-X (Version None)
Quarter: 2005Q4

REPORT INFORMATION
  Report Type: 
  Country: None (occurrence: None)
  Receive Date: 20051103
  Receipt Date: 20051024
  Transmission Date: 20060501
  Serious: Yes (Disabling, Other)
  Sender: FDA-Public Use
  Company Number: 2005147354

PATIENT
  Sex: Female
  Weight: 60.782 kg

DRUGS (7)
  1. ZOLOFT [Suspect]
     Indication: ANXIETY
     Dosage: 200 MG DAILY
  2. ZOLOFT [Suspect]
     Indication: DEPRESSION
     Dosage: 200 MG DAILY
  3. NEURONTIN [Suspect]
     Indication: ANXIETY
     Dosage: 1800 MG DAILY
  4. NEURONTIN [Suspect]
     Indication: PAIN
     Dosage: 1800 MG DAILY
  5. MOBIC [Concomitant]
  6. PREMARIN [Concomitant]
  7. SEROQUEL [Concomitant]

REACTIONS (5)
  - ALLERGY TO CHEMICALS [None]
  - ASTHMA [None]
  - FIBROMYALGIA [None]
  - IMPAIRED WORK ABILITY [None]
  - PAIN [None]
